FAERS Safety Report 6807143-3 (Version None)
Quarter: 2010Q2

REPORT INFORMATION
  Report Type: 
  Country: None (occurrence: None)
  Receive Date: 20100629
  Receipt Date: 20080721
  Transmission Date: 20101027
  Serious: Yes (Other)
  Sender: FDA-Public Use
  Company Number: US-PFIZER INC-2008060885

PATIENT
  Sex: Female
  Weight: 79.1 kg

DRUGS (8)
  1. TIKOSYN [Suspect]
     Indication: ATRIAL FIBRILLATION
     Dates: start: 20080719, end: 20080720
  2. WARFARIN [Concomitant]
  3. TOPROL-XL [Concomitant]
  4. SPIRONOLACTONE [Concomitant]
  5. PREVACID [Concomitant]
  6. FUROSEMIDE [Concomitant]
  7. MULTI-VITAMINS [Concomitant]
  8. ESTROGENS [Concomitant]
     Route: 067

REACTIONS (1)
  - ELECTROCARDIOGRAM QT PROLONGED [None]
